FAERS Safety Report 9695202 (Version 2)
Quarter: 2013Q4

REPORT INFORMATION
  Report Type: Spontaneous
  Country: SK (occurrence: SK)
  Receive Date: 20131119
  Receipt Date: 20131205
  Transmission Date: 20140711
  Serious: Yes (Hospitalization, Other)
  Sender: FDA-Public Use
  Company Number: SK-ACTAVIS-2013-20569

PATIENT
  Age: 45 Year
  Sex: Female

DRUGS (13)
  1. DOXORUBICIN (UNKNOWN) [Suspect]
     Indication: BREAST CANCER
     Dosage: 60 MG/M2, EVERY 21 DAYS,4 CYCLES
     Route: 042
     Dates: start: 20111017
  2. CYCLOPHOSPHAMIDE (UNKNOWN) [Suspect]
     Indication: BREAST CANCER
     Dosage: 600 MG/M2, EVERY 21 DAYS, 4 CYCLES
     Route: 042
     Dates: start: 20111017
  3. DEXAMETHASONE (UNKNOWN) [Suspect]
     Indication: PROPHYLAXIS
     Dosage: 12 MG, UNK
     Route: 042
     Dates: start: 20131017
  4. DEXAMETHASONE (UNKNOWN) [Suspect]
     Dosage: 8 MG, UNK
     Route: 042
  5. PACLITAXEL [Concomitant]
     Indication: BREAST CANCER
     Dosage: 90 MG/M2, UNK
     Route: 042
     Dates: start: 20120112, end: 20120405
  6. TRASTUZUMAB [Concomitant]
     Indication: BREAST CANCER
     Dosage: 4 MG/KG, DURING THE FIRST APPLICATION
     Route: 042
     Dates: start: 20120112
  7. TRASTUZUMAB [Concomitant]
     Dosage: 2 MG/KG, DURING APPLICATIONS 2-12
     Route: 042
     Dates: end: 20120405
  8. TRASTUZUMAB [Concomitant]
     Dosage: UNK
     Route: 065
     Dates: start: 20120619
  9. ONDANSETRON [Concomitant]
     Indication: PROPHYLAXIS
     Dosage: UNK
     Route: 042
     Dates: start: 20131017
  10. APREPITANT [Concomitant]
     Indication: PROPHYLAXIS
     Dosage: UNK
     Route: 048
     Dates: start: 20131017
  11. RANITIDINE [Concomitant]
     Indication: PROPHYLAXIS
     Dosage: 50 MG, UNK
     Route: 042
     Dates: start: 20111017
  12. BISULEPIN [Concomitant]
     Indication: PROPHYLAXIS
     Dosage: 2 MG, UNK
     Route: 042
     Dates: start: 20111017
  13. BISULEPIN [Concomitant]
     Dosage: UNK
     Route: 065
     Dates: start: 20120619

REACTIONS (2)
  - Bipolar I disorder [Recovering/Resolving]
  - Intentional drug misuse [Unknown]
